FAERS Safety Report 10622802 (Version 1)
Quarter: 2014Q4

REPORT INFORMATION
  Report Type: Spontaneous
  Country: US (occurrence: None)
  Receive Date: 20141202
  Receipt Date: 20141202
  Transmission Date: 20150529
  Serious: Yes (Hospitalization)
  Sender: FDA-Public Use
  Company Number: None

PATIENT
  Sex: Male
  Weight: 98.8 kg

DRUGS (1)
  1. AMLODIPINE [Suspect]
     Active Substance: AMLODIPINE BESYLATE
     Indication: HYPERTENSION
     Route: 048
     Dates: start: 20140528, end: 20140610

REACTIONS (5)
  - Rash pruritic [None]
  - Angioedema [None]
  - Urticaria [None]
  - Lip swelling [None]
  - Pharyngitis [None]

NARRATIVE: CASE EVENT DATE: 20140610
